FAERS Safety Report 8082515-0 (Version None)
Quarter: 2012Q1

REPORT INFORMATION
  Report Type: 
  Country: None (occurrence: None)
  Receive Date: 20120127
  Receipt Date: 20110216
  Transmission Date: 20120608
  Serious: No
  Sender: FDA-Public Use
  Company Number: US-ABBOTT-11P-163-0706684-00

PATIENT
  Age: 33 Year
  Sex: Female

DRUGS (5)
  1. HUMIRA [Suspect]
     Dosage: STOPPED DUE TO PREGNANCY.
     Route: 058
     Dates: start: 20080101, end: 20090101
  2. HUMIRA [Suspect]
     Dosage: STOPPED DUE TO PREGNANCY.
     Route: 058
     Dates: start: 20091001, end: 20100201
  3. HUMIRA [Suspect]
     Indication: RHEUMATOID ARTHRITIS
     Route: 058
     Dates: start: 20070101, end: 20080101
  4. HUMIRA [Suspect]
     Route: 058
     Dates: start: 20101101
  5. MULTI-VITAMINS [Concomitant]
     Indication: PREGNANCY
     Dates: start: 20090101

REACTIONS (2)
  - DRUG INEFFECTIVE [None]
  - MENSTRUATION IRREGULAR [None]
